FAERS Safety Report 6646526-1 (Version None)
Quarter: 2010Q1

REPORT INFORMATION
  Report Type: 
  Country: None (occurrence: None)
  Receive Date: 20100323
  Receipt Date: 20100312
  Transmission Date: 20100710
  Serious: Yes (Death, Life-Threatening, Other)
  Sender: FDA-Public Use
  Company Number: TW-MILLENNIUM PHARMACEUTICALS, INC.-2010-01653

PATIENT

DRUGS (3)
  1. VELCADE [Suspect]
     Indication: MULTIPLE MYELOMA
     Dosage: 1.3 MG/M2, CYCLIC
  2. VELCADE [Suspect]
     Dosage: 0.7 MG/M2, CYCLIC
  3. DEXAMETHASONE [Concomitant]
     Indication: PROPHYLAXIS

REACTIONS (2)
  - CAPILLARY LEAK SYNDROME [None]
  - CARDIAC AMYLOIDOSIS [None]
